FAERS Safety Report 6007139-8 (Version None)
Quarter: 2008Q4

REPORT INFORMATION
  Report Type: 
  Country: None (occurrence: None)
  Receive Date: 20081217
  Receipt Date: 20080128
  Transmission Date: 20090506
  Serious: No
  Sender: FDA-Public Use
  Company Number: US-ASTRAZENECA-2008UW01933

PATIENT
  Age: 68 Year
  Sex: Female
  Weight: 59 kg

DRUGS (6)
  1. CRESTOR [Suspect]
     Indication: BLOOD CHOLESTEROL INCREASED
     Route: 048
  2. NORVASC [Concomitant]
  3. HYZAAR [Concomitant]
  4. CLINIDINE [Concomitant]
  5. PROPRANOLOL [Concomitant]
  6. ZYRTEC K [Concomitant]

REACTIONS (2)
  - ALOPECIA [None]
  - BACK PAIN [None]
